FAERS Safety Report 24372796 (Version 1)
Quarter: 2024Q3

REPORT INFORMATION
  Report Type: Spontaneous
  Country: FR (occurrence: FR)
  Receive Date: 20240927
  Receipt Date: 20240927
  Transmission Date: 20241017
  Serious: Yes (Other)
  Sender: JOHNSON AND JOHNSON
  Company Number: FR-JNJFOC-20240618172

PATIENT
  Weight: 69 kg

DRUGS (3)
  1. BALVERSA [Suspect]
     Active Substance: ERDAFITINIB
     Indication: Transitional cell carcinoma
     Route: 048
     Dates: start: 20240423
  2. BALVERSA [Suspect]
     Active Substance: ERDAFITINIB
     Route: 048
     Dates: start: 20240615
  3. BALVERSA [Suspect]
     Active Substance: ERDAFITINIB
     Dosage: DUE TO VACATIONS, DOSAGE REDUCED
     Route: 048

REACTIONS (5)
  - Serous retinal detachment [Recovering/Resolving]
  - Hepatotoxicity [Unknown]
  - Diarrhoea [Unknown]
  - Abdominal pain [Unknown]
  - Paronychia [Unknown]

NARRATIVE: CASE EVENT DATE: 20240101
